FAERS Safety Report 9324522 (Version 3)
Quarter: 2013Q3

REPORT INFORMATION
  Report Type: Report from Study
  Country: FR (occurrence: FR)
  Receive Date: 20130603
  Receipt Date: 20130712
  Transmission Date: 20140515
  Serious: Yes (Death, Life-Threatening, Other)
  Sender: FDA-Public Use
  Company Number: FR-GENZYME-CAMP-1002950

PATIENT
  Age: 52 Year
  Sex: Male

DRUGS (8)
  1. CAMPATH [Suspect]
     Indication: CHRONIC LYMPHOCYTIC LEUKAEMIA
     Dosage: UNK
     Route: 042
     Dates: start: 20121124
  2. CAMPATH [Suspect]
     Dosage: 3X/W
     Route: 042
     Dates: start: 20121126, end: 20130114
  3. CAMPATH [Suspect]
     Dosage: UNK
     Route: 042
     Dates: start: 20130128, end: 20130130
  4. CAMPATH [Suspect]
     Dosage: UNK
     Route: 042
     Dates: start: 20130206, end: 20130301
  5. INEXIUM [Concomitant]
     Indication: PROPHYLAXIS
     Dosage: 20 MG, QD
     Route: 065
     Dates: start: 20121001, end: 20130425
  6. BACTRIM [Concomitant]
     Indication: ANTIFUNGAL PROPHYLAXIS
     Dosage: 1 DF, 3X/W
     Route: 065
     Dates: start: 20121001, end: 20130425
  7. LEDERFOLIN [Concomitant]
     Indication: SUPPLEMENTATION THERAPY
     Dosage: 25 MG, 3X/W
     Route: 065
     Dates: start: 20121001, end: 20130425
  8. ZELITREX [Concomitant]
     Indication: ANTIVIRAL PROPHYLAXIS
     Dosage: 500 MG, BID
     Route: 065
     Dates: start: 20121001, end: 20130425

REACTIONS (4)
  - Septic shock [Fatal]
  - Neutropenia [Unknown]
  - Mycosis fungoides [Not Recovered/Not Resolved]
  - Rash erythematous [Unknown]
